FAERS Safety Report 6584476-X (Version None)
Quarter: 2010Q1

REPORT INFORMATION
  Report Type: 
  Country: None (occurrence: None)
  Receive Date: 20100213
  Receipt Date: 20100213
  Transmission Date: 20100710
  Serious: Yes (Hospitalization)
  Sender: FDA-Public Use
  Company Number: None

PATIENT
  Sex: Female
  Weight: 74 kg

DRUGS (3)
  1. AVASTIN [Suspect]
     Indication: GLIOMA
     Dosage: Q 2WEEKS
  2. CAMPTOSAR [Suspect]
     Indication: GLIOMA
     Dosage: Q 2 WEEKS
  3. TEMODAR [Suspect]
     Indication: GLIOMA
     Dosage: QDAILY M-F

REACTIONS (1)
  - PANCREATITIS [None]
